FAERS Safety Report 10215317 (Version 4)
Quarter: 2015Q2

REPORT INFORMATION
  Report Type: Report from Study
  Country: US (occurrence: US)
  Receive Date: 20140603
  Receipt Date: 20150409
  Transmission Date: 20150821
  Serious: Yes (Other)
  Sender: FDA-Public Use
  Company Number: US-BRISTOL-MYERS SQUIBB COMPANY-20856639

PATIENT
  Age: 72 Year
  Sex: Male
  Weight: 83.1 kg

DRUGS (1)
  1. IPILIMUMAB [Suspect]
     Active Substance: IPILIMUMAB
     Indication: MALIGNANT MELANOMA
     Dosage: 819 MG, UNK
     Route: 042
     Dates: start: 20140310

REACTIONS (2)
  - Peripheral sensory neuropathy [Recovered/Resolved with Sequelae]
  - Pain [Recovered/Resolved with Sequelae]

NARRATIVE: CASE EVENT DATE: 20140507
